FAERS Safety Report 9604622 (Version 2)
Quarter: 2013Q4

REPORT INFORMATION
  Report Type: Spontaneous
  Country: US (occurrence: US)
  Receive Date: 20131008
  Receipt Date: 20131119
  Transmission Date: 20140711
  Serious: Yes (Other)
  Sender: FDA-Public Use
  Company Number: US-PFIZER INC-2013282846

PATIENT
  Age: 37 Year
  Sex: Female
  Weight: 97.51 kg

DRUGS (2)
  1. ELELYSO [Suspect]
     Indication: GAUCHER^S DISEASE
     Dosage: 6000 UNITS EVERY 2 WEEKS
     Route: 042
     Dates: start: 20130107
  2. ELELYSO [Suspect]
     Dosage: UNK

REACTIONS (5)
  - Infusion related reaction [Recovered/Resolved]
  - Body temperature increased [Recovered/Resolved]
  - Chills [Recovered/Resolved]
  - Myalgia [Recovered/Resolved]
  - Blood pressure increased [Recovered/Resolved]
